FAERS Safety Report 7371346-2 (Version None)
Quarter: 2011Q1

REPORT INFORMATION
  Report Type: 
  Country: None (occurrence: None)
  Receive Date: 20110324
  Receipt Date: 20110315
  Transmission Date: 20110831
  Serious: Yes (Other)
  Sender: FDA-Public Use
  Company Number: US-JNJFOC-20110308203

PATIENT
  Sex: Female
  Weight: 82.1 kg

DRUGS (2)
  1. DURAGESIC-50 [Suspect]
     Route: 062
  2. DURAGESIC-50 [Suspect]
     Indication: PAIN
     Route: 062

REACTIONS (5)
  - WRONG TECHNIQUE IN DRUG USAGE PROCESS [None]
  - PRODUCT ADHESION ISSUE [None]
  - PRODUCT QUALITY ISSUE [None]
  - DRUG ADMINISTERED AT INAPPROPRIATE SITE [None]
  - NEPHROLITHIASIS [None]
